FAERS Safety Report 6905767-6 (Version None)
Quarter: 2010Q3

REPORT INFORMATION
  Report Type: 
  Country: None (occurrence: None)
  Receive Date: 20100804
  Receipt Date: 20100730
  Transmission Date: 20110219
  Serious: Yes (Death)
  Sender: FDA-Public Use
  Company Number: US-GILEAD-2010-0030792

PATIENT
  Sex: Female

DRUGS (12)
  1. LETAIRIS [Suspect]
     Indication: PULMONARY ARTERIAL HYPERTENSION
     Route: 048
     Dates: start: 20091001, end: 20100701
  2. WARFARIN SODIUM [Concomitant]
  3. FUROSEMIDE [Concomitant]
  4. LISINOPRIL [Concomitant]
  5. METOPROLOL [Concomitant]
  6. IMDUR [Concomitant]
  7. SIMVASTATIN [Concomitant]
  8. SPIRIVA [Concomitant]
  9. ACIPHEX [Concomitant]
  10. TRAMADOL HYDROCHLORIDE [Concomitant]
  11. FISH OIL [Concomitant]
  12. CALCIUM [Concomitant]

REACTIONS (1)
  - DEATH [None]
